FAERS Safety Report 7131487-1 (Version None)
Quarter: 2010Q4

REPORT INFORMATION
  Report Type: 
  Country: None (occurrence: None)
  Receive Date: 20101201
  Receipt Date: 20101119
  Transmission Date: 20110411
  Serious: Yes (Hospitalization, Other)
  Sender: FDA-Public Use
  Company Number: DE-PFIZER INC-2010152882

PATIENT
  Age: 55 Year
  Sex: Female

DRUGS (13)
  1. LYRICA [Interacting]
     Dosage: 75 MG DAILY
     Route: 048
     Dates: start: 20100323, end: 20100325
  2. LYRICA [Interacting]
     Dosage: 150 MG DAILY
     Route: 048
     Dates: start: 20100326, end: 20100414
  3. DOXACOR [Interacting]
     Dosage: 2 MG DAILY
     Route: 048
     Dates: end: 20100523
  4. ATACAND [Interacting]
     Dosage: 16 MG, 1X/DAY
     Route: 048
  5. METAMIZOLE SODIUM [Interacting]
     Dosage: 100 DROPS DAILY
     Route: 048
     Dates: start: 20100319, end: 20100407
  6. METAMIZOLE SODIUM [Interacting]
     Dosage: 110 DROPS DAILY
     Dates: start: 20100408, end: 20100412
  7. IMBUN [Interacting]
     Dosage: 600 MG, 1X/DAY
     Route: 048
  8. PIPAMPERONE [Suspect]
     Dosage: UNK
     Dates: start: 20100322, end: 20100405
  9. BISOPROLOL [Concomitant]
     Dosage: 10 MG, 1X/DAY
     Route: 048
     Dates: end: 20100611
  10. PANTOZOL [Concomitant]
     Dosage: 40 MG, 1X/DAY
     Route: 048
  11. ESTRAGEST [Concomitant]
     Dosage: UNK, EVERY 2 WEEKS
     Route: 062
  12. CITALOPRAM [Concomitant]
     Dosage: 20 MG DAILY
     Route: 048
     Dates: end: 20100330
  13. CITALOPRAM [Concomitant]
     Dosage: 30 MG DAILY
     Route: 048
     Dates: start: 20100331, end: 20100414

REACTIONS (6)
  - ANKYLOSING SPONDYLITIS [None]
  - DRUG INTERACTION [None]
  - LEUKOPENIA [None]
  - NEUTROPENIA [None]
  - PSORIATIC ARTHROPATHY [None]
  - SWELLING FACE [None]
